FAERS Safety Report 7045758-0 (Version None)
Quarter: 2010Q4

REPORT INFORMATION
  Report Type: 
  Country: None (occurrence: None)
  Receive Date: 20101014
  Receipt Date: 20101007
  Transmission Date: 20110411
  Serious: Yes (Hospitalization)
  Sender: FDA-Public Use
  Company Number: GB-B.I. PHARMACEUTICALS,INC./RIDGEFIELD-2010-UK-00970UK

PATIENT
  Age: 16 Year
  Sex: Male

DRUGS (2)
  1. DIXARIT [Suspect]
     Indication: TOURETTE'S DISORDER
     Dosage: GIVEN AS A TOTAL DAILY DOSE OF DIXARIT + CATAPRES 250MCG (100MCG MORNING/50MCG LUNCH/100MCG EVENING)
     Route: 048
  2. CATAPRES [Suspect]
     Indication: TOURETTE'S DISORDER
     Dosage: GIVEN AS A TOTAL DAILY DOSE OF DIXARIT + CATAPRES 250MCG (100MCG MORNING/50MCG LUNCH/100MCG EVENING)
     Route: 048

REACTIONS (3)
  - BRADYCARDIA [None]
  - FALL [None]
  - ORTHOSTATIC HYPOTENSION [None]
